FAERS Safety Report 8328535-X (Version None)
Quarter: 2012Q2

REPORT INFORMATION
  Report Type: 
  Country: None (occurrence: None)
  Receive Date: 20120502
  Receipt Date: 20120426
  Transmission Date: 20120825
  Serious: Yes (Other)
  Sender: FDA-Public Use
  Company Number: US-RB-038860-12

PATIENT
  Age: 62 Year
  Sex: Female

DRUGS (2)
  1. MUCINEX [Suspect]
     Indication: PRODUCT USED FOR UNKNOWN INDICATION
     Dosage: ENDED UP TAKING 3 POSSIBLY 4 TABLETS ON THURDAY 19-APR-2012 WITHIN 12 HOURS.
     Route: 048
     Dates: start: 20120419
  2. MUCINEX [Suspect]
     Dosage: TAKING DRUG FROM 1-MAR-2012 .
     Route: 048
     Dates: start: 20120301

REACTIONS (6)
  - SWELLING FACE [None]
  - OEDEMA PERIPHERAL [None]
  - INAPPROPRIATE SCHEDULE OF DRUG ADMINISTRATION [None]
  - THROAT TIGHTNESS [None]
  - ACCIDENTAL OVERDOSE [None]
  - SWELLING [None]
